FAERS Safety Report 4742681-9 (Version None)
Quarter: 2005Q3

REPORT INFORMATION
  Report Type: 
  Country: None (occurrence: None)
  Receive Date: 20050811
  Receipt Date: 20050627
  Transmission Date: 20060218
  Serious: Yes (Hospitalization)
  Sender: FDA-Public Use
  Company Number: US-AMGEN-KDL140432

PATIENT
  Sex: Female

DRUGS (16)
  1. ENBREL [Suspect]
     Indication: ANKYLOSING SPONDYLITIS
     Route: 058
     Dates: start: 20041111, end: 20050204
  2. ARAVA [Suspect]
  3. PREDNISONE [Suspect]
  4. AMPICILLIN [Concomitant]
  5. METHOTREXATE [Concomitant]
  6. FOSAMAX [Concomitant]
  7. FOLIC ACID [Concomitant]
  8. NORVASC [Concomitant]
  9. XANAX [Concomitant]
  10. ZANTAC [Concomitant]
  11. MOBIC [Concomitant]
  12. HYDROCHLOROTHIAZIDE [Concomitant]
  13. LIPITOR [Concomitant]
  14. LISINOPRIL [Concomitant]
  15. MULTIVITAMINS W/MINERALS [Concomitant]
  16. TYLENOL PM [Concomitant]

REACTIONS (2)
  - IMMUNOSUPPRESSION [None]
  - LISTERIA SEPSIS [None]
